FAERS Safety Report 21456019 (Version 3)
Quarter: 2022Q4

REPORT INFORMATION
  Report Type: Report from Study
  Country: US (occurrence: US)
  Receive Date: 20221014
  Receipt Date: 20221203
  Transmission Date: 20230113
  Serious: Yes (Other)
  Sender: FDA-Public Use
  Company Number: US-ABBVIE-22K-163-4385669-00

PATIENT
  Sex: Female

DRUGS (5)
  1. HUMIRA [Suspect]
     Active Substance: ADALIMUMAB
     Indication: Rheumatoid arthritis
     Dosage: 40MG/0.4ML CITRATE FREE?FORM STRENGTH WAS 40 MILLIGRAMS
     Route: 058
     Dates: start: 2021
  2. HUMIRA [Suspect]
     Active Substance: ADALIMUMAB
     Route: 058
  3. Pfizer BioNTech COVID-19 vaccin [Concomitant]
     Indication: COVID-19 immunisation
     Dosage: 1ST DOSE
     Route: 030
     Dates: start: 20210208, end: 20210208
  4. Pfizer BioNTech COVID-19 vaccin [Concomitant]
     Indication: COVID-19 immunisation
     Dosage: 2ND DOSE
     Route: 030
     Dates: start: 20210301, end: 20210301
  5. Pfizer BioNTech COVID-19 vaccin [Concomitant]
     Indication: COVID-19 immunisation
     Dosage: 3RD DOSE
     Route: 030
     Dates: start: 20211104, end: 20211104

REACTIONS (8)
  - Medical device removal [Recovering/Resolving]
  - Arthralgia [Not Recovered/Not Resolved]
  - Respiratory disorder [Unknown]
  - Dry eye [Recovering/Resolving]
  - Fungal skin infection [Not Recovered/Not Resolved]
  - Dry skin [Recovering/Resolving]
  - Sinusitis [Not Recovered/Not Resolved]
  - Fungal infection [Unknown]

NARRATIVE: CASE EVENT DATE: 20220101
